FAERS Safety Report 25713601 (Version 1)
Quarter: 2025Q3

REPORT INFORMATION
  Report Type: Spontaneous
  Country: US (occurrence: US)
  Receive Date: 20250822
  Receipt Date: 20250822
  Transmission Date: 20251020
  Serious: No
  Sender: GLAXOSMITHKLINE
  Company Number: US-GSK-US2025AMR089986

PATIENT
  Sex: Female
  Weight: 63 kg

DRUGS (3)
  1. NUCALA [Suspect]
     Active Substance: MEPOLIZUMAB
     Indication: Illness
     Dosage: 100 MG, Q4W
  2. HYDROCODONE [Concomitant]
     Active Substance: HYDROCODONE
     Indication: Breast cancer
  3. HYDROCODONE [Concomitant]
     Active Substance: HYDROCODONE

REACTIONS (2)
  - Lower limb fracture [Unknown]
  - Road traffic accident [Unknown]
